FAERS Safety Report 11186684 (Version 1)
Quarter: 2015Q2

REPORT INFORMATION
  Report Type: Report from Study
  Country: JP (occurrence: JP)
  Receive Date: 20150613
  Receipt Date: 20150613
  Transmission Date: 20150821
  Serious: Yes (Other)
  Sender: FDA-Public Use
  Company Number: JP-TEVA-569817ISR

PATIENT
  Age: 64 Year
  Sex: Female

DRUGS (22)
  1. CARBOPLATIN. [Suspect]
     Active Substance: CARBOPLATIN
     Dosage: 340 MILLIGRAM DAILY;
     Route: 042
     Dates: start: 20140327, end: 20140327
  2. CARBOPLATIN. [Suspect]
     Active Substance: CARBOPLATIN
     Dosage: 274 MILLIGRAM DAILY;
     Route: 042
     Dates: start: 20140529, end: 20140529
  3. FILGRASTIM BS INJ. NK [Suspect]
     Active Substance: FILGRASTIM
     Dosage: 75 MICROGRAM DAILY;
     Route: 058
     Dates: start: 20140428, end: 20140428
  4. PACLITAXEL. [Suspect]
     Active Substance: PACLITAXEL
     Dosage: 230 MILLIGRAM DAILY;
     Route: 042
     Dates: start: 20140306, end: 20140306
  5. FILGRASTIM BS INJ. NK [Suspect]
     Active Substance: FILGRASTIM
     Dosage: 75 MICROGRAM DAILY;
     Route: 058
     Dates: start: 20140408, end: 20140409
  6. FILGRASTIM BS INJ. NK [Suspect]
     Active Substance: FILGRASTIM
     Dosage: 75 MICROGRAM DAILY;
     Route: 058
     Dates: start: 20140425, end: 20140425
  7. CARBOPLATIN. [Suspect]
     Active Substance: CARBOPLATIN
     Dosage: 300 MILLIGRAM DAILY;
     Route: 042
     Dates: start: 20140417, end: 20140417
  8. FILGRASTIM BS INJ. NK [Suspect]
     Active Substance: FILGRASTIM
     Indication: NEUTROPENIA
     Dosage: 75 MICROGRAM DAILY;
     Route: 058
     Dates: start: 20140225, end: 20140226
  9. CARBOPLATIN. [Suspect]
     Active Substance: CARBOPLATIN
     Dosage: 430 MILLIGRAM DAILY;
     Route: 042
     Dates: start: 20140306, end: 20140306
  10. FILGRASTIM BS INJ. NK [Suspect]
     Active Substance: FILGRASTIM
     Dosage: 75 MICROGRAM DAILY;
     Route: 058
     Dates: start: 20140516, end: 20140516
  11. FILGRASTIM BS INJ. NK [Suspect]
     Active Substance: FILGRASTIM
     Dosage: 75 MICROGRAM DAILY;
     Route: 058
     Dates: start: 20140404, end: 20140405
  12. PACLITAXEL. [Suspect]
     Active Substance: PACLITAXEL
     Indication: OVARIAN CANCER
     Dosage: 229 MILLIGRAM DAILY;
     Route: 042
     Dates: start: 20140213, end: 20140213
  13. PACLITAXEL. [Suspect]
     Active Substance: PACLITAXEL
     Dosage: 164 MILLIGRAM DAILY;
     Route: 042
     Dates: start: 20140417, end: 20140417
  14. CARBOPLATIN. [Suspect]
     Active Substance: CARBOPLATIN
     Indication: OVARIAN CANCER
     Dosage: 448 MILLIGRAM DAILY;
     Route: 042
     Dates: start: 20140213, end: 20140213
  15. FILGRASTIM BS INJ. NK [Suspect]
     Active Substance: FILGRASTIM
     Dosage: 75 MICROGRAM DAILY;
     Route: 058
     Dates: start: 20140523, end: 20140524
  16. PACLITAXEL. [Suspect]
     Active Substance: PACLITAXEL
     Dosage: 185 MILLIGRAM DAILY;
     Route: 042
     Dates: start: 20140327, end: 20140327
  17. PACLITAXEL. [Suspect]
     Active Substance: PACLITAXEL
     Dosage: 167 MILLIGRAM DAILY;
     Route: 042
     Dates: start: 20140508, end: 20140508
  18. PACLITAXEL. [Suspect]
     Active Substance: PACLITAXEL
     Dosage: 144 MILLIGRAM DAILY;
     Route: 042
     Dates: start: 20140529, end: 20140529
  19. FILGRASTIM BS INJ. NK [Suspect]
     Active Substance: FILGRASTIM
     Dosage: 75 MICROGRAM DAILY;
     Route: 058
     Dates: start: 20140314, end: 20140314
  20. FILGRASTIM BS INJ. NK [Suspect]
     Active Substance: FILGRASTIM
     Dosage: 75 MICROGRAM DAILY;
     Route: 058
     Dates: start: 20140318, end: 20140319
  21. FILGRASTIM BS INJ. NK [Suspect]
     Active Substance: FILGRASTIM
     Dosage: 75 MICROGRAM DAILY;
     Route: 058
     Dates: start: 20140613, end: 20140613
  22. CARBOPLATIN. [Suspect]
     Active Substance: CARBOPLATIN
     Dosage: 316 MILLIGRAM DAILY;
     Route: 042
     Dates: start: 20140508, end: 20140508

REACTIONS (1)
  - Bone marrow failure [Recovered/Resolved]

NARRATIVE: CASE EVENT DATE: 20140404
